FAERS Safety Report 7640593-4 (Version None)
Quarter: 2011Q3

REPORT INFORMATION
  Report Type: 
  Country: None (occurrence: None)
  Receive Date: 20110728
  Receipt Date: 20110721
  Transmission Date: 20111222
  Serious: No
  Sender: FDA-Public Use
  Company Number: US-BIOGENIDEC-2011BI027325

PATIENT
  Sex: Female

DRUGS (1)
  1. AVONEX [Suspect]
     Indication: MULTIPLE SCLEROSIS
     Route: 030
     Dates: start: 20080601, end: 20090601

REACTIONS (4)
  - HEAD DISCOMFORT [None]
  - HYPERSENSITIVITY [None]
  - MOBILITY DECREASED [None]
  - NASOPHARYNGITIS [None]
